FAERS Safety Report 16324317 (Version 1)
Quarter: 2019Q2

REPORT INFORMATION
  Report Type: Spontaneous
  Country: DE (occurrence: DE)
  Receive Date: 20190517
  Receipt Date: 20190517
  Transmission Date: 20190711
  Serious: Yes (Other)
  Sender: FDA-Public Use
  Company Number: DE-BAYER-2019-096688

PATIENT
  Age: 47 Year
  Sex: Female
  Weight: 80 kg

DRUGS (3)
  1. MIRENA [Suspect]
     Active Substance: LEVONORGESTREL
     Dosage: UNK
  2. MIRENA [Suspect]
     Active Substance: LEVONORGESTREL
     Dosage: UNK
     Route: 015
     Dates: start: 2006
  3. MIRENA [Suspect]
     Active Substance: LEVONORGESTREL
     Dosage: UNK
     Route: 015

REACTIONS (13)
  - Anxiety [Not Recovered/Not Resolved]
  - Bruxism [Not Recovered/Not Resolved]
  - Muscle tightness [Not Recovered/Not Resolved]
  - Weight increased [Not Recovered/Not Resolved]
  - Apathy [Recovering/Resolving]
  - Feeling abnormal [Recovering/Resolving]
  - Depression [Not Recovered/Not Resolved]
  - Muscle tightness [Recovering/Resolving]
  - Autoimmune thyroiditis [Not Recovered/Not Resolved]
  - Panic attack [Not Recovered/Not Resolved]
  - Suicide attempt [Unknown]
  - Migraine [Recovering/Resolving]
  - Impaired work ability [Recovering/Resolving]

NARRATIVE: CASE EVENT DATE: 2006
